FAERS Safety Report 24614454 (Version 1)
Quarter: 2024Q4

REPORT INFORMATION
  Report Type: Spontaneous
  Country: US (occurrence: None)
  Receive Date: 20241113
  Receipt Date: 20241113
  Transmission Date: 20250114
  Serious: Yes (Hospitalization)
  Sender: Public
  Company Number: None

PATIENT
  Sex: Male

DRUGS (2)
  1. OPSUMIT [Suspect]
     Active Substance: MACITENTAN
     Indication: Pulmonary arterial hypertension
     Dosage: FREQUENCY : DAILY;?
     Route: 048
     Dates: start: 202202
  2. TYVASO DPI [Suspect]
     Active Substance: TREPROSTINIL

REACTIONS (6)
  - Chest pain [None]
  - Chest discomfort [None]
  - Fatigue [None]
  - Insomnia [None]
  - Cardiac disorder [None]
  - Lung disorder [None]
